FAERS Safety Report 6068803-8 (Version None)
Quarter: 2009Q1

REPORT INFORMATION
  Report Type: 
  Country: None (occurrence: None)
  Receive Date: 20090203
  Receipt Date: 20090126
  Transmission Date: 20090719
  Serious: Yes (Hospitalization)
  Sender: FDA-Public Use
  Company Number: TCI2008A03366

PATIENT
  Age: 81 Year
  Sex: Male

DRUGS (12)
  1. TAKEPRON OD TABLETS [Suspect]
     Indication: HELICOBACTER INFECTION
     Dosage: 30 MG (30 MG, 1 OM 1 D) PER ORAL, 60 MG  MG (30 MG, 2 IN 1 D) PER ORAL
     Route: 048
     Dates: start: 20080129, end: 20080218
  2. TAKEPRON OD TABLETS [Suspect]
     Indication: HELICOBACTER INFECTION
     Dosage: 30 MG (30 MG, 1 OM 1 D) PER ORAL, 60 MG  MG (30 MG, 2 IN 1 D) PER ORAL
     Route: 048
     Dates: start: 20080219, end: 20080225
  3. TAKEPRON OD TABLETS [Suspect]
     Indication: HELICOBACTER INFECTION
     Dosage: 30 MG (30 MG, 1 OM 1 D) PER ORAL, 60 MG  MG (30 MG, 2 IN 1 D) PER ORAL
     Route: 048
     Dates: start: 20080226
  4. GLYBURIDE [Suspect]
     Indication: DIABETES MELLITUS
     Dosage: SEE IMAGE
     Route: 048
     Dates: end: 20080124
  5. GLYBURIDE [Suspect]
     Indication: DIABETES MELLITUS
     Dosage: SEE IMAGE
     Route: 048
     Dates: start: 20080202, end: 20080222
  6. GLYBURIDE [Suspect]
     Indication: DIABETES MELLITUS
     Dosage: SEE IMAGE
     Route: 048
     Dates: start: 20080226, end: 20080226
  7. GLYBURIDE [Suspect]
     Indication: DIABETES MELLITUS
     Dosage: SEE IMAGE
     Route: 048
     Dates: start: 20080227, end: 20080307
  8. GLYBURIDE [Suspect]
     Indication: DIABETES MELLITUS
     Dosage: SEE IMAGE
     Route: 048
     Dates: start: 20080313, end: 20080323
  9. CLARITIN [Suspect]
     Indication: HELICOBACTER INFECTION
     Dosage: 800 MG (400 MG, 2 IN 1 D) PER ORAL
     Route: 048
     Dates: start: 20080219, end: 20080225
  10. SAWACILLIN (AMOXICILLIN TRIHYDRATE) (CAPSULES) [Concomitant]
  11. DIOVEN (VALSARTAN) (TABLETS) [Concomitant]
  12. ADALAT CR (NIFEDIPINE) (TABLETS) [Concomitant]

REACTIONS (13)
  - ALTERED STATE OF CONSCIOUSNESS [None]
  - BLOOD GLUCOSE INCREASED [None]
  - DIARRHOEA [None]
  - DRUG INTERACTION [None]
  - DUODENAL ULCER PERFORATION [None]
  - GASTROINTESTINAL ULCER [None]
  - GLYCOSYLATED HAEMOGLOBIN INCREASED [None]
  - HEART RATE DECREASED [None]
  - HYPERHIDROSIS [None]
  - HYPOGLYCAEMIA [None]
  - HYPOPHAGIA [None]
  - TACHYPNOEA [None]
  - WHEEZING [None]
